FAERS Safety Report 7930102-4 (Version None)
Quarter: 2011Q4

REPORT INFORMATION
  Report Type: 
  Country: None (occurrence: None)
  Receive Date: 20111121
  Receipt Date: 20111111
  Transmission Date: 20120403
  Serious: Yes (Hospitalization)
  Sender: FDA-Public Use
  Company Number: US-GENZYME-POMP-1001869

PATIENT
  Sex: Female
  Weight: 17.4 kg

DRUGS (1)
  1. MYOZYME [Suspect]
     Indication: GLYCOGEN STORAGE DISEASE TYPE II
     Dosage: 450 MG, Q2W
     Route: 042
     Dates: start: 20090209

REACTIONS (1)
  - PNEUMONIA ASPIRATION [None]
